FAERS Safety Report 9254820 (Version 1)
Quarter: 2013Q2

REPORT INFORMATION
  Report Type: Report from Study
  Country: BR (occurrence: BR)
  Receive Date: 20130425
  Receipt Date: 20130425
  Transmission Date: 20140414
  Serious: Yes (Hospitalization)
  Sender: FDA-Public Use
  Company Number: BR-ABBOTT-13P-020-1078727-00

PATIENT
  Age: 40 Year
  Sex: Female
  Weight: 62 kg

DRUGS (5)
  1. HUMIRA [Suspect]
     Indication: RHEUMATOID ARTHRITIS
     Route: 058
     Dates: start: 201204, end: 201207
  2. PARACETAMOL/ PREDNISONE/ CHLOROQUINE [Concomitant]
     Indication: ARTHRITIS
     Route: 048
     Dates: start: 201212
  3. LOSARTAN [Concomitant]
     Indication: HYPERTENSION
     Route: 048
     Dates: start: 2008
  4. MODURETIC [Concomitant]
     Indication: HYPERTENSION
     Route: 048
     Dates: start: 2008
  5. INFLIXIMAB [Concomitant]
     Indication: RHEUMATOID ARTHRITIS

REACTIONS (9)
  - Dyspnoea [Recovered/Resolved]
  - Nephrolithiasis [Recovered/Resolved]
  - Pulmonary oedema [Recovered/Resolved]
  - Cystitis [Recovered/Resolved]
  - Pleural effusion [Unknown]
  - Pneumonia [Unknown]
  - Immunosuppression [Unknown]
  - Bloody discharge [Unknown]
  - Pharyngeal oedema [Unknown]
